FAERS Safety Report 6132406-7 (Version None)
Quarter: 2009Q1

REPORT INFORMATION
  Report Type: 
  Country: None (occurrence: None)
  Receive Date: 20090325
  Receipt Date: 20090319
  Transmission Date: 20090719
  Serious: Yes (Disabling)
  Sender: FDA-Public Use
  Company Number: MX-B.I. PHARMACEUTICALS,INC./RIDGEFIELD-2009-MX-00020MX

PATIENT
  Age: 62 Year
  Sex: Male

DRUGS (4)
  1. SECOTEX OCAS [Suspect]
     Indication: BENIGN PROSTATIC HYPERPLASIA
     Dosage: .4MG
     Route: 048
     Dates: start: 20090319, end: 20090319
  2. INSULIN [Concomitant]
     Indication: DIABETES MELLITUS
  3. ASPIRIN [Concomitant]
     Indication: HYPERTENSION
  4. ATACAND [Concomitant]
     Indication: HYPERTENSION

REACTIONS (5)
  - DRY MOUTH [None]
  - HEADACHE [None]
  - HYPOTENSION [None]
  - NAUSEA [None]
  - VERTIGO [None]
